FAERS Safety Report 16455355 (Version 1)
Quarter: 2019Q2

REPORT INFORMATION
  Report Type: Spontaneous
  Country: US (occurrence: US)
  Receive Date: 20190619
  Receipt Date: 20190619
  Transmission Date: 20190711
  Serious: No
  Sender: FDA-Public Use
  Company Number: US-ROCHE-2141384

PATIENT
  Age: 55 Year
  Sex: Male
  Weight: 72.64 kg

DRUGS (5)
  1. FLUZONE [INFLUENZA VACCINE] [Concomitant]
     Route: 023
     Dates: start: 20170720
  2. ACTEMRA [Suspect]
     Active Substance: TOCILIZUMAB
     Indication: RHEUMATOID ARTHRITIS
     Route: 058
     Dates: start: 20180525, end: 20180613
  3. FOLIC ACID. [Concomitant]
     Active Substance: FOLIC ACID
     Route: 048
     Dates: start: 20170328
  4. IBUPROFEN. [Concomitant]
     Active Substance: IBUPROFEN
     Dosage: ONGOING:UNKNOWN
     Route: 048
     Dates: start: 20170331
  5. PREDNISONE. [Concomitant]
     Active Substance: PREDNISONE
     Route: 048
     Dates: start: 20170328

REACTIONS (3)
  - Pruritus generalised [Recovered/Resolved]
  - Rash [Unknown]
  - Injection site pain [Recovered/Resolved]

NARRATIVE: CASE EVENT DATE: 20180525
